FAERS Safety Report 7100662-4 (Version None)
Quarter: 2010Q4

REPORT INFORMATION
  Report Type: 
  Country: None (occurrence: None)
  Receive Date: 20101113
  Receipt Date: 20100310
  Transmission Date: 20110411
  Serious: Yes (Other)
  Sender: FDA-Public Use
  Company Number: US-ALLERGAN-0917010US

PATIENT
  Age: 42 Year
  Sex: Female

DRUGS (5)
  1. BOTOXA? [Suspect]
     Indication: DYSTONIA
     Dosage: 360 UNITS, SINGLE
     Route: 030
     Dates: start: 20091114, end: 20091114
  2. BOTOXA? [Suspect]
     Dosage: UNK
     Dates: start: 20090825, end: 20090825
  3. BOTOXA? [Suspect]
     Dosage: UNK
     Dates: start: 20090602, end: 20090602
  4. BOTOXA? [Suspect]
     Dosage: UNK
     Dates: start: 20090314, end: 20090314
  5. BOTOXA? [Suspect]
     Dosage: UNK
     Dates: start: 20090120, end: 20090120

REACTIONS (2)
  - MUSCULAR WEAKNESS [None]
  - MYOPATHY [None]
